FAERS Safety Report 13338902 (Version 10)
Quarter: 2018Q1

REPORT INFORMATION
  Report Type: Spontaneous
  Country: US (occurrence: US)
  Receive Date: 20170315
  Receipt Date: 20180119
  Transmission Date: 20180508
  Serious: Yes (Congenital Anomaly, Other)
  Sender: FDA-Public Use
  Company Number: PHEH2017US007500

PATIENT
  Sex: Female

DRUGS (2)
  1. ZOFRAN [Suspect]
     Active Substance: ONDANSETRON HYDROCHLORIDE
     Indication: FOETAL EXPOSURE DURING PREGNANCY
     Dosage: MOTHER DOSE: 04 MG
     Route: 064
  2. ZOFRAN ODT [Suspect]
     Active Substance: ONDANSETRON HYDROCHLORIDE
     Indication: FOETAL EXPOSURE DURING PREGNANCY
     Dosage: MOTHER DOSE: 04 MG
     Route: 064

REACTIONS (18)
  - Upper respiratory tract infection [Unknown]
  - Heart disease congenital [Unknown]
  - Foetal exposure during pregnancy [Unknown]
  - Otitis media [Unknown]
  - Constipation [Recovered/Resolved]
  - Pyrexia [Unknown]
  - Dermal cyst [Unknown]
  - Diarrhoea [Unknown]
  - Cyanosis [Unknown]
  - Rhinorrhoea [Unknown]
  - Pulmonary valve stenosis congenital [Unknown]
  - Cardiac murmur [Unknown]
  - Atrial septal defect [Unknown]
  - Asthma exercise induced [Unknown]
  - Injury [Unknown]
  - Seborrhoeic dermatitis [Unknown]
  - Cough [Unknown]
  - Vomiting [Unknown]
